FAERS Safety Report 10735699 (Version 1)
Quarter: 2015Q1

REPORT INFORMATION
  Report Type: Spontaneous
  Country: FR (occurrence: FR)
  Receive Date: 20150126
  Receipt Date: 20150126
  Transmission Date: 20150721
  Serious: Yes (Life-Threatening)
  Sender: FDA-Public Use
  Company Number: FR-ROCHE-1524773

PATIENT
  Age: 79 Year
  Sex: Male

DRUGS (12)
  1. ZOPHREN [Concomitant]
     Active Substance: ONDANSETRON
  2. PRADAXA [Concomitant]
     Active Substance: DABIGATRAN ETEXILATE MESYLATE
     Dosage: DOSE: 110 MG X 2
     Route: 065
  3. ENDOXAN [Concomitant]
     Active Substance: CYCLOPHOSPHAMIDE
     Route: 065
  4. MABTHERA [Suspect]
     Active Substance: RITUXIMAB
     Indication: B-CELL LYMPHOMA
     Route: 041
     Dates: start: 20141202
  5. DIAMICRON [Concomitant]
     Active Substance: GLICLAZIDE
  6. UROMITEXAN [Concomitant]
     Active Substance: MESNA
  7. CORTANCYL [Concomitant]
     Active Substance: PREDNISONE
     Route: 065
  8. INEXIUM [Concomitant]
     Active Substance: ESOMEPRAZOLE
     Dosage: DOSE: 40 MG X1
     Route: 065
  9. DOXORUBICINE [Concomitant]
     Active Substance: DOXORUBICIN
     Route: 065
  10. VINCRISTINE [Concomitant]
     Active Substance: VINCRISTINE
     Route: 065
  11. ATARAX [Concomitant]
     Active Substance: HYDROXYZINE\HYDROXYZINE HYDROCHLORIDE
     Dosage: DOSE: 25 MG X 1
     Route: 065
  12. LERCAN [Concomitant]
     Active Substance: LERCANIDIPINE
     Dosage: DOSE: 10 MG X1
     Route: 065

REACTIONS (4)
  - Hypotension [Recovered/Resolved]
  - Oxygen saturation decreased [Recovered/Resolved]
  - Infusion related reaction [Recovered/Resolved]
  - Tremor [Recovered/Resolved]

NARRATIVE: CASE EVENT DATE: 20141202
